FAERS Safety Report 8139090-1 (Version None)
Quarter: 2012Q1

REPORT INFORMATION
  Report Type: 
  Country: None (occurrence: None)
  Receive Date: 20120215
  Receipt Date: 20120210
  Transmission Date: 20120608
  Serious: Yes (Other)
  Sender: FDA-Public Use
  Company Number: BR-PFIZER INC-2012037868

PATIENT
  Age: 64 Year
  Sex: Female

DRUGS (4)
  1. LYRICA [Suspect]
     Dosage: 150 MG, 2X/DAY
     Route: 048
     Dates: start: 20111010
  2. TRAMADOL HYDROCHLORIDE [Concomitant]
     Indication: PAIN
     Dosage: 2X/DAY (UNSPECIFIED DOSAGE)
  3. DIPROSPAN [Concomitant]
     Dosage: EVERY 24 HOURS (USNPECIFIED DAOSAGE)
  4. NIMESULIDE [Concomitant]
     Indication: PAIN
     Dosage: 1X/DAY (UNSPECIFIED DOSAGE)

REACTIONS (1)
  - INTERVERTEBRAL DISC PROTRUSION [None]
